FAERS Safety Report 18134749 (Version 1)
Quarter: 2020Q3

REPORT INFORMATION
  Report Type: Spontaneous
  Country: US (occurrence: US)
  Receive Date: 20200810
  Receipt Date: 20200810
  Transmission Date: 20201103
  Serious: Yes (Other)
  Sender: FDA-Public Use
  Company Number: None

PATIENT
  Age: 37 Year

DRUGS (2)
  1. DRYSOL [Suspect]
     Active Substance: ALUMINUM CHLORIDE
  2. GLYCOPYRROLATE 6MG [Suspect]
     Active Substance: GLYCOPYRROLATE

REACTIONS (1)
  - Drug ineffective [None]

NARRATIVE: CASE EVENT DATE: 20200810
